FAERS Safety Report 19904701 (Version 1)
Quarter: 2021Q4

REPORT INFORMATION
  Report Type: Spontaneous
  Country: US (occurrence: US)
  Receive Date: 20211001
  Receipt Date: 20211001
  Transmission Date: 20220303
  Serious: Yes (Other)
  Sender: FDA-Public Use
  Company Number: US-HQ SPECIALTY-US-2021INT000178

PATIENT

DRUGS (1)
  1. CISPLATIN [Suspect]
     Active Substance: CISPLATIN
     Indication: Triple negative breast cancer
     Dosage: 75 MG/M2, ON DAY 1, EVERY 21 DAYS FOR FOUR CYCLES
     Route: 065

REACTIONS (1)
  - Hepatic function abnormal [Unknown]
